FAERS Safety Report 17521762 (Version 1)
Quarter: 2020Q1

REPORT INFORMATION
  Report Type: Spontaneous
  Country: FR (occurrence: FR)
  Receive Date: 20200310
  Receipt Date: 20200310
  Transmission Date: 20200409
  Serious: Yes (Hospitalization, Other)
  Sender: FDA-Public Use
  Company Number: FR-SA-2020SA057314

PATIENT
  Age: 60 Year
  Sex: Female
  Weight: 51 kg

DRUGS (1)
  1. TAXOTERE [Suspect]
     Active Substance: DOCETAXEL
     Indication: NEOPLASM MALIGNANT
     Dosage: 119 MG
     Route: 042
     Dates: start: 20200128

REACTIONS (3)
  - Rash maculo-papular [Not Recovered/Not Resolved]
  - Skin necrosis [Not Recovered/Not Resolved]
  - Hand-foot-and-mouth disease [Not Recovered/Not Resolved]

NARRATIVE: CASE EVENT DATE: 20200214
